FAERS Safety Report 5313085-5 (Version None)
Quarter: 2007Q2

REPORT INFORMATION
  Report Type: 
  Country: None (occurrence: None)
  Receive Date: 20070424
  Receipt Date: 20070416
  Transmission Date: 20071010
  Serious: Yes (Death)
  Sender: FDA-Public Use
  Company Number: 002#1#2007-00064

PATIENT
  Age: 27 Year
  Sex: Male

DRUGS (3)
  1. COLYTE [Suspect]
     Indication: FAECALOMA
     Dosage: 300ML, 1ONCE, NASOGASTRIC
     Dates: start: 20070412, end: 20070412
  2. SODIUM PHOSPHATES [Suspect]
     Indication: FAECALOMA
     Dosage: 2 IN 1 D, RECTAL
     Route: 054
     Dates: start: 20070412, end: 20070412
  3. DIGOXIN [Concomitant]

REACTIONS (4)
  - CONSTIPATION [None]
  - HAEMOLYSIS [None]
  - HYPOCALCAEMIA [None]
  - HYPOKALAEMIA [None]
